FAERS Safety Report 16203572 (Version 1)
Quarter: 2019Q2

REPORT INFORMATION
  Report Type: Spontaneous
  Country: US (occurrence: US)
  Receive Date: 20190416
  Receipt Date: 20190416
  Transmission Date: 20190711
  Serious: Yes (Hospitalization, Other)
  Sender: FDA-Public Use
  Company Number: US-GLAXOSMITHKLINE-US2019GSK034272

PATIENT
  Age: 76 Year
  Sex: Female
  Weight: 91.61 kg

DRUGS (6)
  1. VALTREX [Suspect]
     Active Substance: VALACYCLOVIR HYDROCHLORIDE
     Indication: HERPES VIRUS INFECTION
     Dosage: UNK UNK, QD
     Route: 048
  2. FLOVENT [Suspect]
     Active Substance: FLUTICASONE PROPIONATE
     Indication: LUNG DISORDER
  3. FLOVENT [Suspect]
     Active Substance: FLUTICASONE PROPIONATE
     Indication: SINUS DISORDER
  4. FLOVENT [Suspect]
     Active Substance: FLUTICASONE PROPIONATE
     Indication: DYSPNOEA
     Dosage: 2 PUFF(S), BID
     Route: 055
     Dates: start: 2005
  5. DYAZIDE [Suspect]
     Active Substance: HYDROCHLOROTHIAZIDE\TRIAMTERENE
     Indication: PRODUCT USED FOR UNKNOWN INDICATION
     Dosage: UNK
  6. ADVAIR HFA [Suspect]
     Active Substance: FLUTICASONE PROPIONATE\SALMETEROL XINAFOATE
     Indication: PRODUCT USED FOR UNKNOWN INDICATION
     Dosage: UNK
     Route: 055
     Dates: start: 2006

REACTIONS (17)
  - Muscle rupture [Unknown]
  - Hip surgery [Unknown]
  - Breast cancer [Recovered/Resolved]
  - Hip fracture [Recovering/Resolving]
  - Asthenia [Recovered/Resolved]
  - Pneumonia [Unknown]
  - Renal disorder [Unknown]
  - Lymphadenopathy [Unknown]
  - Presyncope [Recovered/Resolved]
  - Dyspnoea [Recovered/Resolved]
  - Device allergy [Not Recovered/Not Resolved]
  - Stent placement [Unknown]
  - Drug intolerance [Unknown]
  - Weight increased [Unknown]
  - Fall [Unknown]
  - Sinus operation [Unknown]
  - Decreased activity [Unknown]

NARRATIVE: CASE EVENT DATE: 2006
